FAERS Safety Report 7107543 (Version 22)
Quarter: 2014Q3

REPORT INFORMATION
  Report Type: Report from Study
  Country: CA (occurrence: CA)
  Receive Date: 20090908
  Receipt Date: 20140813
  Transmission Date: 20150326
  Serious: Yes (Death, Hospitalization, Other)
  Sender: FDA-Public Use
  Company Number: PHHY2009CA34947

PATIENT
  Age: 65 Year
  Sex: Female

DRUGS (3)
  1. SANDOSTATIN LAR DEPOT [Suspect]
     Active Substance: OCTREOTIDE ACETATE
     Dosage: 10 MG, QMO
     Route: 030
     Dates: end: 20101108
  2. SANDOSTATIN LAR DEPOT [Suspect]
     Active Substance: OCTREOTIDE ACETATE
     Indication: ACROMEGALY
     Dosage: 10 MG EVERY 4 WEEKS
     Route: 030
     Dates: start: 20090721
  3. SANDOSTATIN LAR DEPOT [Suspect]
     Active Substance: OCTREOTIDE ACETATE
     Dosage: 10 MG, QMO
     Route: 030
     Dates: end: 20140506

REACTIONS (20)
  - Abdominal distension [Unknown]
  - Death [Fatal]
  - Pneumonia [Unknown]
  - Flatulence [Unknown]
  - Diarrhoea [Unknown]
  - Vomiting [Unknown]
  - Movement disorder [Unknown]
  - Neoplasm malignant [Unknown]
  - Cholecystitis [Unknown]
  - Cancer pain [Unknown]
  - Waist circumference increased [Unknown]
  - Abdominal pain [Unknown]
  - Constipation [Unknown]
  - Decreased appetite [Unknown]
  - Headache [Unknown]
  - Lung neoplasm malignant [Unknown]
  - Abdominal discomfort [Unknown]
  - Pain [Unknown]
  - Blood pressure increased [Unknown]
  - Loose tooth [Unknown]

NARRATIVE: CASE EVENT DATE: 20140711
